FAERS Safety Report 8337945-6 (Version None)
Quarter: 2012Q2

REPORT INFORMATION
  Report Type: 
  Country: None (occurrence: None)
  Receive Date: 20120504
  Receipt Date: 20120427
  Transmission Date: 20120825
  Serious: Yes (Other)
  Sender: FDA-Public Use
  Company Number: DE-BRISTOL-MYERS SQUIBB COMPANY-16554701

PATIENT
  Age: 61 Year
  Sex: Male
  Weight: 120 kg

DRUGS (1)
  1. ONGLYZA [Suspect]
     Indication: TYPE 2 DIABETES MELLITUS
     Route: 048
     Dates: start: 20120322, end: 20120412

REACTIONS (2)
  - PANCREATITIS [None]
  - EPISTAXIS [None]
